FAERS Safety Report 5086054-0 (Version None)
Quarter: 2006Q3

REPORT INFORMATION
  Report Type: 
  Country: None (occurrence: None)
  Receive Date: 20060816
  Receipt Date: 20060810
  Transmission Date: 20061208
  Serious: Yes (Death)
  Sender: FDA-Public Use
  Company Number: SEWYE678211AUG06

PATIENT
  Age: 31 Year
  Sex: Female

DRUGS (5)
  1. ETHINYL ESTRADIOL AND LEVONORGESTREL [Suspect]
     Indication: PROPHYLAXIS
     Dosage: ORAL
     Route: 048
     Dates: start: 19900201
  2. CISORDINOL - SLOW RELEASE (ZUCLOPENTHOXOL DECANOATE, , 0) [Suspect]
     Indication: SCHIZOPHRENIA
     Dosage: IM
     Route: 030
  3. NOZINAN (LEVOMEPROMAZINE) [Concomitant]
  4. DOLERON (ACETYLSALICYLIC ACID/CAFFEINE/DEXTROPROPOXYPHENE HYDROCHLORID [Concomitant]
  5. DISIPAL (ORPHENADRINE HYDROHCLORIDE) [Concomitant]

REACTIONS (2)
  - ABDOMINAL PAIN [None]
  - PULMONARY EMBOLISM [None]
